FAERS Safety Report 6264082-7 (Version None)
Quarter: 2009Q3

REPORT INFORMATION
  Report Type: 
  Country: None (occurrence: None)
  Receive Date: 20090706
  Receipt Date: 20080626
  Transmission Date: 20100115
  Serious: Yes (Hospitalization)
  Sender: FDA-Public Use
  Company Number: 572798

PATIENT
  Age: 70 Year
  Sex: Female

DRUGS (1)
  1. CELLCEPT [Suspect]
     Indication: VASCULITIS

REACTIONS (1)
  - LARGE INTESTINE PERFORATION [None]
